FAERS Safety Report 22054176 (Version 1)
Quarter: 2023Q1

REPORT INFORMATION
  Report Type: Spontaneous
  Country: US (occurrence: US)
  Receive Date: 20230302
  Receipt Date: 20230302
  Transmission Date: 20230418
  Serious: Yes (Hospitalization)
  Sender: FDA-Public Use
  Company Number: US-NOVOPROD-921770

PATIENT
  Age: 60 Year
  Sex: Female
  Weight: 79.832 kg

DRUGS (2)
  1. SAXENDA [Suspect]
     Active Substance: LIRAGLUTIDE
     Indication: Obesity
     Dosage: 3 MG
     Route: 058
     Dates: start: 20220502, end: 202205
  2. SAXENDA [Suspect]
     Active Substance: LIRAGLUTIDE
     Dosage: RESTARTED AT THE LOWEST DOSE
     Route: 058
     Dates: start: 202205

REACTIONS (7)
  - Vomiting [Recovering/Resolving]
  - Nausea [Recovering/Resolving]
  - Bowel movement irregularity [Recovering/Resolving]
  - Gastrointestinal pain [Recovering/Resolving]
  - Eructation [Recovering/Resolving]
  - Product communication issue [Recovered/Resolved]
  - Product use issue [Recovered/Resolved]

NARRATIVE: CASE EVENT DATE: 20220501
